FAERS Safety Report 10237001 (Version 1)
Quarter: 2014Q2

REPORT INFORMATION
  Report Type: Spontaneous
  Country: US (occurrence: US)
  Receive Date: 20140613
  Receipt Date: 20140613
  Transmission Date: 20141212
  Serious: Yes (Death)
  Sender: FDA-Public Use
  Company Number: US-JNJFOC-20140606825

PATIENT
  Age: 5 Year
  Sex: 0

DRUGS (8)
  1. DACOGEN [Suspect]
     Indication: LYMPHOCYTIC LEUKAEMIA
     Dosage: DAYS 1 THROUGH 4
     Route: 042
  2. DOXORUBICIN HYDROCHLORIDE [Suspect]
     Indication: LYMPHOCYTIC LEUKAEMIA
     Dosage: ON DAY 5 STARTING
     Route: 042
  3. PEG-ASPARAGINASE [Suspect]
     Indication: LYMPHOCYTIC LEUKAEMIA
     Dosage: 2500 IU/M2
     Route: 065
  4. VINCRISTINE [Suspect]
     Indication: LYMPHOCYTIC LEUKAEMIA
     Dosage: STARTING ON DAY 5
     Route: 065
  5. PREDNISONE [Suspect]
     Indication: LYMPHOCYTIC LEUKAEMIA
     Dosage: STARTING ON DAY 5
     Route: 065
  6. VORINOSTAT [Suspect]
     Indication: LYMPHOCYTIC LEUKAEMIA
     Dosage: DIVIDED TWICE DAILY DAYS 1 THROUGH 4
     Route: 048
  7. CYTARABINE [Suspect]
     Indication: LYMPHOCYTIC LEUKAEMIA
     Route: 037
  8. METHOTREXATE [Suspect]
     Indication: LYMPHOCYTIC LEUKAEMIA
     Route: 037

REACTIONS (3)
  - Toxicity to various agents [Fatal]
  - Haemorrhage [Fatal]
  - Off label use [Unknown]
